FAERS Safety Report 18354403 (Version 3)
Quarter: 2020Q4

REPORT INFORMATION
  Report Type: Spontaneous
  Country: US (occurrence: US)
  Receive Date: 20201007
  Receipt Date: 20201119
  Transmission Date: 20210114
  Serious: Yes (Life-Threatening)
  Sender: FDA-Public Use
  Company Number: US-PFIZER INC-2020384220

PATIENT
  Age: 51 Year
  Sex: Male

DRUGS (3)
  1. IFOSFAMIDE. [Concomitant]
     Active Substance: IFOSFAMIDE
     Indication: METASTASES TO SPINE
  2. GEMCITABINE HYDROCHLORIDE. [Suspect]
     Active Substance: GEMCITABINE HYDROCHLORIDE
     Dosage: 1 G/M2 ON DAY 1, DAY 8, AND DAY 15, REPEATED EVERY 4 WEEKS
  3. IFOSFAMIDE. [Concomitant]
     Active Substance: IFOSFAMIDE
     Indication: BRONCHIOLOALVEOLAR CARCINOMA
     Dosage: CYCLIC (WAS GIVEN ON DAY 1, AND THE CYCLE WAS REPEATED EVERY 4 WEEKS

REACTIONS (1)
  - Lung disorder [Recovering/Resolving]
